FAERS Safety Report 4363685-4 (Version None)
Quarter: 2004Q2

REPORT INFORMATION
  Report Type: 
  Country: None (occurrence: None)
  Receive Date: 20040521
  Receipt Date: 20040521
  Transmission Date: 20050107
  Serious: Yes (Life-Threatening, Hospitalization)
  Sender: FDA-Public Use
  Company Number: None

PATIENT
  Age: 78 Year
  Sex: Male
  Weight: 79.2 kg

DRUGS (1)
  1. GENTAMICIN [Suspect]
     Indication: OTITIS EXTERNA
     Dosage: 100 MG WED AND FRI IV
     Route: 042
     Dates: start: 20040107, end: 20040412

REACTIONS (1)
  - RENAL FAILURE ACUTE [None]
